FAERS Safety Report 12888628 (Version 1)
Quarter: 2016Q4

REPORT INFORMATION
  Report Type: Spontaneous
  Country: FR (occurrence: FR)
  Receive Date: 20161027
  Receipt Date: 20161027
  Transmission Date: 20170207
  Serious: Yes (Other)
  Sender: FDA-Public Use
  Company Number: FR-009507513-1610FRA011072

PATIENT
  Age: 60 Year
  Sex: Female

DRUGS (7)
  1. ZELITREX [Suspect]
     Active Substance: VALACYCLOVIR HYDROCHLORIDE
     Indication: ANTIVIRAL PROPHYLAXIS
     Dosage: 2 DF, QD
     Route: 048
     Dates: start: 20160915, end: 20160926
  2. BACTRIM [Concomitant]
     Active Substance: SULFAMETHOXAZOLE\TRIMETHOPRIM
     Dosage: 3 DF, QW
     Route: 048
     Dates: start: 20160915, end: 20160926
  3. ZELITREX [Suspect]
     Active Substance: VALACYCLOVIR HYDROCHLORIDE
     Dosage: 2 DF, QD
     Route: 048
     Dates: start: 20161003, end: 20161005
  4. NOXAFIL [Suspect]
     Active Substance: POSACONAZOLE
     Indication: ANTIFUNGAL PROPHYLAXIS
     Dosage: 3 DF, QD(GASTRO-RESISTANT TABLET)
     Route: 048
     Dates: start: 20160915, end: 20160926
  5. NOXAFIL [Suspect]
     Active Substance: POSACONAZOLE
     Dosage: 3 DF, QD(GASTRO-RESISTANT TABLET)
     Route: 048
     Dates: start: 20161003, end: 20161005
  6. NIPENT [Suspect]
     Active Substance: PENTOSTATIN
     Indication: HAIRY CELL LEUKAEMIA
     Dosage: 1 DF, QOW
     Route: 042
     Dates: start: 20160915, end: 20160915
  7. NIPENT [Suspect]
     Active Substance: PENTOSTATIN
     Dosage: 1 DF, QOW
     Route: 042
     Dates: start: 20160929

REACTIONS (7)
  - Cough [Recovered/Resolved]
  - Dermatitis exfoliative [Recovered/Resolved]
  - C-reactive protein increased [Recovering/Resolving]
  - Pyrexia [Recovered/Resolved]
  - Cholestasis [Recovering/Resolving]
  - Cell death [Recovering/Resolving]
  - Chills [Recovered/Resolved]

NARRATIVE: CASE EVENT DATE: 20160919
